FAERS Safety Report 13625313 (Version 1)
Quarter: 2017Q2

REPORT INFORMATION
  Report Type: Spontaneous
  Country: US (occurrence: US)
  Receive Date: 20170608
  Receipt Date: 20170608
  Transmission Date: 20170830
  Serious: Yes (Hospitalization)
  Sender: FDA-Public Use
  Company Number: US-APOTEX-2017AP012711

PATIENT
  Age: 78 Year
  Sex: Male

DRUGS (2)
  1. LEUPROLIDE /00726901/ [Suspect]
     Active Substance: LEUPROLIDE
     Indication: PROSTATE CANCER METASTATIC
     Dosage: 45 MG, EVERY 6 MONTHS
     Route: 058
  2. BICALUTAMIDE TABLETS USP [Suspect]
     Active Substance: BICALUTAMIDE
     Indication: PROSTATE CANCER METASTATIC
     Dosage: 50 MG, DAILY
     Route: 048

REACTIONS (5)
  - Polyuria [None]
  - Weight decreased [None]
  - Blood glucose increased [None]
  - Glycosylated haemoglobin increased [Recovered/Resolved]
  - Fall [None]
